FAERS Safety Report 10928766 (Version 2)
Quarter: 2015Q2

REPORT INFORMATION
  Report Type: Spontaneous
  Country: US (occurrence: US)
  Receive Date: 20150319
  Receipt Date: 20150524
  Transmission Date: 20150821
  Serious: No
  Sender: FDA-Public Use
  Company Number: US-JNJFOC-20140418618

PATIENT
  Age: 58 Year
  Sex: Male
  Weight: 77.11 kg

DRUGS (2)
  1. METHYLPHENIDATE HCL (WATSON) [Suspect]
     Active Substance: METHYLPHENIDATE HYDROCHLORIDE
     Indication: ATTENTION DEFICIT/HYPERACTIVITY DISORDER
     Dosage: THE PATIENT HAS TAKEN MEDICATION ONLY ON 17-APR-2014 AND 22-APR-2014.
     Route: 048
     Dates: start: 20140417
  2. METHYLPHENIDATE HCL (WATSON) [Suspect]
     Active Substance: METHYLPHENIDATE HYDROCHLORIDE
     Indication: ATTENTION DEFICIT/HYPERACTIVITY DISORDER
     Dosage: THE PATIENT HAS TAKEN MEDICATION ONLY ON 17-APR-2014 AND 22-APR-2014.
     Route: 048
     Dates: start: 20140422, end: 20140423

REACTIONS (3)
  - Insomnia [Recovered/Resolved]
  - Product quality issue [Recovered/Resolved]
  - Drug ineffective [Not Recovered/Not Resolved]

NARRATIVE: CASE EVENT DATE: 20140417
